FAERS Safety Report 5599477-8 (Version None)
Quarter: 2008Q1

REPORT INFORMATION
  Report Type: 
  Country: None (occurrence: None)
  Receive Date: 20080117
  Receipt Date: 20071218
  Transmission Date: 20080703
  Serious: Yes (Disabling)
  Sender: FDA-Public Use
  Company Number: 2008AL000161

PATIENT
  Age: 57 Year
  Sex: Male

DRUGS (9)
  1. DIGOXIN [Suspect]
     Dosage: 0.25 MG; QD; PO
     Route: 048
     Dates: start: 19900101
  2. FLUVOXAMINE MALEATE [Suspect]
     Dosage: 100 MG; QD; PO
     Route: 048
     Dates: start: 19960101
  3. ALLOPURINOL [Concomitant]
  4. OMEPRAZOLE [Concomitant]
  5. BISOPROLOL FUMARATE [Concomitant]
  6. LEVOTHYROX [Concomitant]
  7. FUROSEMIDE [Concomitant]
  8. SINTROM [Concomitant]
  9. PANTESTONE [Concomitant]

REACTIONS (5)
  - JOINT SPRAIN [None]
  - LIGAMENT RUPTURE [None]
  - RIGHT VENTRICULAR FAILURE [None]
  - SOFT TISSUE INJURY [None]
  - TENDON RUPTURE [None]
